FAERS Safety Report 11483018 (Version 1)
Quarter: 2015Q3

REPORT INFORMATION
  Report Type: Spontaneous
  Country: US (occurrence: US)
  Receive Date: 20150903
  Receipt Date: 20150903
  Transmission Date: 20151125
  Serious: No
  Sender: FDA-Public Use
  Company Number: US-ELI_LILLY_AND_COMPANY-US201108008006

PATIENT
  Age: 76 Year
  Sex: Female

DRUGS (21)
  1. CARDIZEM [Concomitant]
     Active Substance: DILTIAZEM HYDROCHLORIDE
  2. DONNATAL [Concomitant]
     Active Substance: ATROPINE SULFATE\HYOSCYAMINE SULFATE\PHENOBARBITAL\SCOPOLAMINE HYDROBROMIDE
  3. NEXIUM [Concomitant]
     Active Substance: ESOMEPRAZOLE MAGNESIUM
  4. ULTRAM [Concomitant]
     Active Substance: TRAMADOL HYDROCHLORIDE
  5. CYMBALTA [Suspect]
     Active Substance: DULOXETINE HYDROCHLORIDE
     Dosage: UNK, UNKNOWN
     Dates: end: 20110806
  6. PRINIVIL [Concomitant]
     Active Substance: LISINOPRIL
  7. ANTIHYPERTENSIVES [Concomitant]
     Active Substance: UNSPECIFIED INGREDIENT
     Indication: HYPERTENSION
  8. CENTRUM SILVER [Concomitant]
     Active Substance: VITAMINS
  9. CRESTOR [Concomitant]
     Active Substance: ROSUVASTATIN CALCIUM
  10. CYMBALTA [Suspect]
     Active Substance: DULOXETINE HYDROCHLORIDE
     Indication: MUSCULOSKELETAL PAIN
     Dosage: 20 MG, QD
     Dates: start: 20110114
  11. VITAMINS [Concomitant]
     Active Substance: VITAMINS
  12. ASPIRIN. [Concomitant]
     Active Substance: ASPIRIN
  13. CALCIUM [Concomitant]
     Active Substance: CALCIUM
  14. IBUPROFEN. [Concomitant]
     Active Substance: IBUPROFEN
  15. FIORICET [Concomitant]
     Active Substance: ACETAMINOPHEN\BUTALBITAL\CAFFEINE
  16. DYAZIDE [Concomitant]
     Active Substance: HYDROCHLOROTHIAZIDE\TRIAMTERENE
  17. FLORASTOR [Concomitant]
     Active Substance: SACCHAROMYCES CEREVISIAE
  18. VITAMIN C [Concomitant]
     Active Substance: ASCORBIC ACID
  19. XANAX [Concomitant]
     Active Substance: ALPRAZOLAM
  20. LOVAZA [Concomitant]
     Active Substance: OMEGA-3-ACID ETHYL ESTERS
  21. MAGNESIUM [Concomitant]
     Active Substance: MAGNESIUM

REACTIONS (12)
  - Weight decreased [Unknown]
  - Malaise [Unknown]
  - Hypersomnia [Recovering/Resolving]
  - Drug ineffective [Recovered/Resolved]
  - Blood pressure increased [Recovered/Resolved]
  - Nausea [Unknown]
  - Intentional product misuse [Recovered/Resolved]
  - Drug withdrawal syndrome [Recovering/Resolving]
  - Decreased appetite [Recovering/Resolving]
  - Paraesthesia [Not Recovered/Not Resolved]
  - Tinnitus [Not Recovered/Not Resolved]
  - Dizziness [Unknown]

NARRATIVE: CASE EVENT DATE: 201108
